FAERS Safety Report 6457732-3 (Version None)
Quarter: 2009Q4

REPORT INFORMATION
  Report Type: 
  Country: None (occurrence: None)
  Receive Date: 20091125
  Receipt Date: 20091113
  Transmission Date: 20100525
  Serious: Yes (Other)
  Sender: FDA-Public Use
  Company Number: US-SANOFI-AVENTIS-200919118US

PATIENT
  Age: 62 Year
  Sex: Female

DRUGS (6)
  1. OPTICLICK [Suspect]
  2. INSULIN GLARGINE [Suspect]
     Dosage: DOSE:50 UNIT(S)
     Route: 058
  3. HUMALOG [Concomitant]
     Dosage: DOSE UNIT: 25 U DOSE:25 UNIT(S)
     Dates: start: 20090501
  4. DIURETICS [Concomitant]
     Dosage: DOSE AS USED: UNK
  5. ANTIEPILEPTICS [Concomitant]
     Dosage: DOSE AS USED: UNK
  6. LIPITOR [Concomitant]
     Dosage: DOSE AS USED: UNK

REACTIONS (5)
  - BLOOD GLUCOSE INCREASED [None]
  - CATARACT [None]
  - INJECTION SITE HAEMATOMA [None]
  - INJECTION SITE PAIN [None]
  - VISION BLURRED [None]
